FAERS Safety Report 7954172-2 (Version None)
Quarter: 2011Q4

REPORT INFORMATION
  Report Type: 
  Country: None (occurrence: None)
  Receive Date: 20111202
  Receipt Date: 20111123
  Transmission Date: 20120403
  Serious: Yes (Hospitalization)
  Sender: FDA-Public Use
  Company Number: US-UCBSA-043276

PATIENT
  Age: 52 Year
  Sex: Male
  Weight: 118 kg

DRUGS (6)
  1. CIMZIA [Suspect]
     Indication: CROHN'S DISEASE
     Route: 058
     Dates: start: 20110111, end: 20110924
  2. CIMZIA [Suspect]
     Route: 058
     Dates: start: 20100428, end: 20100526
  3. PREDNISONE TAB [Concomitant]
     Dosage: 5MG DAILY
     Dates: start: 20111001
  4. ACETAMINOPHEN [Concomitant]
     Indication: CROHN'S DISEASE
  5. CIMZIA [Suspect]
     Route: 058
     Dates: start: 20100609, end: 20100915
  6. PREDNISONE TAB [Concomitant]
     Indication: CROHN'S DISEASE
     Dosage: 10MG DAILY
     Route: 048
     Dates: start: 20080201, end: 20111014

REACTIONS (1)
  - SEPSIS [None]
